FAERS Safety Report 25030479 (Version 5)
Quarter: 2025Q4

REPORT INFORMATION
  Report Type: Report from Study
  Country: IN (occurrence: IN)
  Receive Date: 20250303
  Receipt Date: 20251228
  Transmission Date: 20260117
  Serious: Yes (Death, Hospitalization, Other)
  Sender: Vantive US Healthcare
  Company Number: IN-VANTIVE-2025VAN001016

PATIENT
  Age: 57 Year
  Sex: Male

DRUGS (3)
  1. DIANEAL PD-2 PERITONEAL DIALYSIS SOLUTION WITH DEXTROSE [Suspect]
     Active Substance: CALCIUM CHLORIDE\DEXTROSE\MAGNESIUM CHLORIDE\SODIUM CHLORIDE\SODIUM LACTATE
     Indication: Renal failure
     Dosage: 2 BAGS PER DAY
  2. DIANEAL PD-2 PERITONEAL DIALYSIS SOLUTION WITH DEXTROSE [Suspect]
     Active Substance: CALCIUM CHLORIDE\DEXTROSE\MAGNESIUM CHLORIDE\SODIUM CHLORIDE\SODIUM LACTATE
     Dosage: 1 BAG PER DAY ALONG WITH WEEKLY ONCE HD
  3. EXTRANEAL [Suspect]
     Active Substance: CALCIUM CHLORIDE\ICODEXTRIN\MAGNESIUM CHLORIDE\SODIUM CHLORIDE\SODIUM LACTATE
     Indication: Renal failure
     Dosage: 1 BAG

REACTIONS (8)
  - Cardiac arrest [Fatal]
  - Oedema peripheral [Recovered/Resolved]
  - Oedema peripheral [Recovered/Resolved]
  - Face oedema [Recovered/Resolved]
  - Hypervolaemia [Recovered/Resolved]
  - Dyspnoea [Recovered/Resolved]
  - Inadequate peritoneal dialysis [Recovered/Resolved]
  - Treatment noncompliance [Unknown]
